FAERS Safety Report 4994794-4 (Version None)
Quarter: 2006Q1

REPORT INFORMATION
  Report Type: 
  Country: None (occurrence: None)
  Receive Date: 20060310
  Receipt Date: 20051219
  Transmission Date: 20060701
  Serious: Yes (Hospitalization)
  Sender: FDA-Public Use
  Company Number: 028

PATIENT
  Sex: Female

DRUGS (2)
  1. FAZACLO ODT [Suspect]
     Indication: SCHIZOPHRENIA
     Dosage: 100 MG PO DAILY
     Route: 048
     Dates: start: 20051013, end: 20051201
  2. DEPAKOTE [Concomitant]

REACTIONS (1)
  - PANCREATITIS [None]
